FAERS Safety Report 18227260 (Version 1)
Quarter: 2020Q3

REPORT INFORMATION
  Report Type: Report from Study
  Country: CA (occurrence: CA)
  Receive Date: 20200903
  Receipt Date: 20200903
  Transmission Date: 20201103
  Serious: Yes (Other)
  Sender: FDA-Public Use
  Company Number: CA-ACCORD-198691

PATIENT
  Age: 57 Year
  Sex: Female

DRUGS (13)
  1. METHOTREXATE. [Suspect]
     Active Substance: METHOTREXATE
     Indication: PRODUCT USED FOR UNKNOWN INDICATION
  2. MYCOPHENOLIC ACID. [Suspect]
     Active Substance: MYCOPHENOLIC ACID
     Indication: PRODUCT USED FOR UNKNOWN INDICATION
  3. PREDNISONE. [Concomitant]
     Active Substance: PREDNISONE
  4. HYDROMORPHONE/HYDROMORPHONE HYDROCHLORIDE [Concomitant]
     Active Substance: HYDROMORPHONE
  5. DIAZEPAM. [Suspect]
     Active Substance: DIAZEPAM
     Indication: PRODUCT USED FOR UNKNOWN INDICATION
  6. ERGOCALCIFEROL. [Concomitant]
     Active Substance: ERGOCALCIFEROL
  7. TACROLIMUS. [Suspect]
     Active Substance: TACROLIMUS
     Indication: PRODUCT USED FOR UNKNOWN INDICATION
  8. THALIDOMIDE [Suspect]
     Active Substance: THALIDOMIDE
     Indication: PRODUCT USED FOR UNKNOWN INDICATION
  9. ATIVAN [Concomitant]
     Active Substance: LORAZEPAM
  10. BELIMUMAB [Suspect]
     Active Substance: BELIMUMAB
     Indication: PRODUCT USED FOR UNKNOWN INDICATION
  11. SECUKINUMAB. [Suspect]
     Active Substance: SECUKINUMAB
     Indication: PRODUCT USED FOR UNKNOWN INDICATION
  12. METHYLPREDNISOLONE. [Concomitant]
     Active Substance: METHYLPREDNISOLONE
  13. ACITRETIN. [Concomitant]
     Active Substance: ACITRETIN

REACTIONS (24)
  - Herpes zoster [Unknown]
  - Immunoglobulins decreased [Unknown]
  - Urinary tract infection [Unknown]
  - Atrial fibrillation [Unknown]
  - Dyslipidaemia [Unknown]
  - Mean cell haemoglobin increased [Unknown]
  - Systemic lupus erythematosus [Unknown]
  - Drug dependence [Unknown]
  - Osteopenia [Unknown]
  - Synovitis [Unknown]
  - Blood creatinine increased [Unknown]
  - Vitamin D decreased [Unknown]
  - Haematocrit decreased [Unknown]
  - Protein urine present [Unknown]
  - Rhesus antigen positive [Unknown]
  - Creatinine renal clearance decreased [Unknown]
  - Glomerular filtration rate decreased [Unknown]
  - Red cell distribution width increased [Unknown]
  - Blood immunoglobulin G decreased [Unknown]
  - Blood immunoglobulin M decreased [Unknown]
  - White blood cell count decreased [Unknown]
  - Blood albumin increased [Unknown]
  - Blood potassium increased [Unknown]
  - Drug ineffective [Unknown]
